FAERS Safety Report 19591461 (Version 1)
Quarter: 2021Q3

REPORT INFORMATION
  Report Type: Spontaneous
  Country: US (occurrence: US)
  Receive Date: 20210721
  Receipt Date: 20210721
  Transmission Date: 20211014
  Serious: Yes (Other)
  Sender: FDA-Public Use
  Company Number: US-BAUSCH-BL-2021-024510

PATIENT
  Age: 55 Year
  Sex: Female

DRUGS (1)
  1. OPCON?A [Suspect]
     Active Substance: NAPHAZOLINE HYDROCHLORIDE\PHENIRAMINE MALEATE
     Indication: HYPERSENSITIVITY
     Dosage: 2 DROPS IN EACH EYE ONCE A DAY
     Route: 047
     Dates: end: 20210707

REACTIONS (6)
  - Eye movement disorder [Recovering/Resolving]
  - Mydriasis [Recovering/Resolving]
  - Eye irritation [Recovering/Resolving]
  - Optic nerve injury [Recovering/Resolving]
  - Vision blurred [Recovering/Resolving]
  - Abnormal sensation in eye [Recovering/Resolving]

NARRATIVE: CASE EVENT DATE: 20210706
